FAERS Safety Report 8585188-3 (Version None)
Quarter: 2012Q3

REPORT INFORMATION
  Report Type: 
  Country: None (occurrence: None)
  Receive Date: 20120810
  Receipt Date: 20120807
  Transmission Date: 20120928
  Serious: Yes (Hospitalization, Other)
  Sender: FDA-Public Use
  Company Number: PHHY2011US27506

PATIENT
  Sex: Female
  Weight: 47.619 kg

DRUGS (5)
  1. METHADONE HYDROCHLORIDE [Concomitant]
     Dosage: UNK UKN, UNK
  2. EXJADE [Suspect]
     Indication: SICKLE CELL ANAEMIA
     Dosage: 1000 MG, QD
     Route: 048
     Dates: start: 20101204, end: 20110801
  3. OXYCONTIN [Concomitant]
     Dosage: 400 MG, Q12H
     Route: 048
     Dates: start: 20101222, end: 20111207
  4. FOLIC ACID [Concomitant]
     Indication: SICKLE CELL ANAEMIA
     Dosage: 1 MG DAILY
     Route: 048
  5. PERCOCET [Concomitant]
     Dosage: UNK UKN, UNK
     Route: 048
     Dates: start: 20101207, end: 20111207

REACTIONS (4)
  - DYSPEPSIA [None]
  - NAUSEA [None]
  - CHEST PAIN [None]
  - SERUM FERRITIN INCREASED [None]
